FAERS Safety Report 9324087 (Version 2)
Quarter: 2014Q1

REPORT INFORMATION
  Report Type: Report from Study
  Country: DE (occurrence: DE)
  Receive Date: 20130603
  Receipt Date: 20140103
  Transmission Date: 20141002
  Serious: No
  Sender: FDA-Public Use
  Company Number: DE-SANOFI-AVENTIS-2013SA055509

PATIENT
  Sex: 0

DRUGS (1)
  1. DRONEDARONE [Suspect]
     Indication: ARRHYTHMIA SUPRAVENTRICULAR
     Route: 048

REACTIONS (1)
  - Blood creatinine increased [Unknown]
